FAERS Safety Report 6126597-1 (Version None)
Quarter: 2009Q1

REPORT INFORMATION
  Report Type: 
  Country: None (occurrence: None)
  Receive Date: 20090320
  Receipt Date: 20090310
  Transmission Date: 20090719
  Serious: Yes (Other)
  Sender: FDA-Public Use
  Company Number: US-PFIZER INC-2006047917

PATIENT
  Sex: Female
  Weight: 158 kg

DRUGS (4)
  1. MEDROXYPROGESTERONE AND MEDROXYPROGESTERONE ACETATE [Suspect]
     Indication: HORMONE REPLACEMENT THERAPY
     Dosage: 2.5 MG, 1X/DAY
     Route: 048
     Dates: start: 19950116, end: 19960329
  2. PREMARIN [Suspect]
     Indication: HORMONE REPLACEMENT THERAPY
     Dosage: 0.625 MG, 1X/DAY
     Route: 065
     Dates: start: 19950116, end: 19960329
  3. PREMPRO [Suspect]
     Indication: HORMONE REPLACEMENT THERAPY
     Dosage: UNK, 0.625/2.5
     Route: 065
     Dates: start: 19960329, end: 20010103
  4. PREMPRO [Suspect]
     Dosage: UNK, 0.625/2.5
     Route: 065
     Dates: start: 20010103, end: 20010530

REACTIONS (1)
  - BREAST CANCER [None]
